FAERS Safety Report 21700114 (Version 2)
Quarter: 2023Q1

REPORT INFORMATION
  Report Type: Report from Study
  Country: US (occurrence: US)
  Receive Date: 20221208
  Receipt Date: 20230111
  Transmission Date: 20230417
  Serious: Yes (Other)
  Sender: FDA-Public Use
  Company Number: US-GLAXOSMITHKLINE-US2022107118

PATIENT

DRUGS (1)
  1. BELANTAMAB MAFODOTIN [Suspect]
     Active Substance: BELANTAMAB MAFODOTIN
     Indication: Product used for unknown indication
     Dosage: UNK
     Dates: start: 20220519

REACTIONS (5)
  - Punctate keratitis [Unknown]
  - Keratopathy [Unknown]
  - Visual acuity reduced [Not Recovered/Not Resolved]
  - Dry eye [Not Recovered/Not Resolved]
  - Night blindness [Not Recovered/Not Resolved]

NARRATIVE: CASE EVENT DATE: 20220628
